FAERS Safety Report 6187402-0 (Version None)
Quarter: 2009Q2

REPORT INFORMATION
  Report Type: 
  Country: None (occurrence: None)
  Receive Date: 20090512
  Receipt Date: 20090506
  Transmission Date: 20091009
  Serious: Yes (Hospitalization)
  Sender: FDA-Public Use
  Company Number: B0573562A

PATIENT
  Sex: Female
  Weight: 75 kg

DRUGS (1)
  1. LAPATINIB [Suspect]
     Indication: BREAST CANCER
     Dosage: 1500MG PER DAY
     Route: 048

REACTIONS (4)
  - DIARRHOEA [None]
  - PYREXIA [None]
  - RASH [None]
  - VOMITING [None]
